FAERS Safety Report 22042957 (Version 1)
Quarter: 2023Q1

REPORT INFORMATION
  Report Type: Other
  Country: GB (occurrence: GB)
  Receive Date: 20230228
  Receipt Date: 20230228
  Transmission Date: 20230417
  Serious: Yes (Other)
  Sender: FDA-Public Use
  Company Number: GB-MACLEODS PHARMA EU LTD-MAC2023039937

PATIENT

DRUGS (1)
  1. LEVOFLOXACIN [Suspect]
     Active Substance: LEVOFLOXACIN
     Indication: Product used for unknown indication
     Dosage: UNK (START DATE: 2016)
     Route: 065

REACTIONS (9)
  - Hydronephrosis [Unknown]
  - Flank pain [Unknown]
  - Fatigue [Unknown]
  - Asthenia [Unknown]
  - Myalgia [Unknown]
  - Tendon pain [Unknown]
  - Arthralgia [Unknown]
  - Paraesthesia [Unknown]
  - Paraesthesia [Unknown]
